FAERS Safety Report 25254751 (Version 3)
Quarter: 2025Q3

REPORT INFORMATION
  Report Type: Spontaneous
  Country: EU (occurrence: EU)
  Receive Date: 20250430
  Receipt Date: 20250909
  Transmission Date: 20251021
  Serious: Yes (Other)
  Sender: UCB
  Company Number: EU-UCBSA-2025024124

PATIENT
  Age: 54 Year
  Sex: Male
  Weight: 75 kg

DRUGS (8)
  1. KEPPRA [Suspect]
     Active Substance: LEVETIRACETAM
     Indication: Cerebral haemorrhage
     Dosage: 500 MILLIGRAM, 2X/DAY (BID)
     Dates: start: 2010
  2. KEPPRA [Suspect]
     Active Substance: LEVETIRACETAM
     Indication: Off label use
  3. KEPPRA [Suspect]
     Active Substance: LEVETIRACETAM
  4. PANTHENOL [Concomitant]
     Active Substance: PANTHENOL
     Indication: Alopecia
     Dosage: 100 MILLIGRAM, 2X/DAY (BID)
  5. VITAMIN B12 [Concomitant]
     Active Substance: CYANOCOBALAMIN
     Indication: Product used for unknown indication
  6. VITAMIN D3 [Concomitant]
     Active Substance: CHOLECALCIFEROL
     Indication: Product used for unknown indication
  7. CALCIUM [Concomitant]
     Active Substance: CALCIUM
     Indication: Product used for unknown indication
  8. MAGNESIUM [Concomitant]
     Active Substance: MAGNESIUM
     Indication: Product used for unknown indication

REACTIONS (12)
  - Syncope [Unknown]
  - Cerebral haemorrhage [Unknown]
  - Headache [Unknown]
  - Wheezing [Recovered/Resolved]
  - Urine output increased [Unknown]
  - Polydipsia [Unknown]
  - Presyncope [Unknown]
  - Foreign body in mouth [Unknown]
  - Feeling abnormal [Unknown]
  - Heart rate increased [Unknown]
  - Off label use [Unknown]
  - Product use issue [Unknown]

NARRATIVE: CASE EVENT DATE: 20250801
